FAERS Safety Report 8255144-3 (Version None)
Quarter: 2012Q1

REPORT INFORMATION
  Report Type: 
  Country: None (occurrence: None)
  Receive Date: 20120330
  Receipt Date: 20120316
  Transmission Date: 20120608
  Serious: Yes (Disabling)
  Sender: FDA-Public Use
  Company Number: DSA_55769_2012

PATIENT
  Sex: Female
  Weight: 81.6475 kg

DRUGS (6)
  1. WELLBUTRIN XL [Suspect]
     Indication: MENTAL DISORDER
     Dosage: 300 MG, QD, ORAL
     Route: 048
  2. WELLBUTRIN XL [Suspect]
     Indication: ATTENTION DEFICIT/HYPERACTIVITY DISORDER
     Dosage: 300 MG, QD, ORAL
     Route: 048
  3. WELLBUTRIN XL [Suspect]
     Indication: DEPRESSION
     Dosage: 300 MG, QD, ORAL
     Route: 048
  4. LISINOPRIL [Concomitant]
  5. CLONIDINE HYDROCHLORIDE [Concomitant]
  6. PRISTIQ [Suspect]
     Indication: DEPRESSION
     Dosage: 50 MG, QD
     Dates: start: 20111101, end: 20120201

REACTIONS (4)
  - SOMNOLENCE [None]
  - HEADACHE [None]
  - FEELING ABNORMAL [None]
  - DEPRESSION [None]
